FAERS Safety Report 13471863 (Version 1)
Quarter: 2017Q2

REPORT INFORMATION
  Report Type: Spontaneous
  Country: US (occurrence: US)
  Receive Date: 20170423
  Receipt Date: 20170423
  Transmission Date: 20170830
  Serious: Yes (Hospitalization)
  Sender: FDA-Public Use
  Company Number: None

PATIENT
  Age: 61 Year
  Sex: Male
  Weight: 66.68 kg

DRUGS (1)
  1. PACLITAXEL. [Suspect]
     Active Substance: PACLITAXEL
     Indication: LUNG NEOPLASM MALIGNANT
     Route: 042
     Dates: start: 20170307, end: 20170307

REACTIONS (8)
  - Loss of consciousness [None]
  - Hypersensitivity [None]
  - Hyperhidrosis [None]
  - Productive cough [None]
  - Syncope [None]
  - Haemoptysis [None]
  - Apnoea [None]
  - Tachypnoea [None]

NARRATIVE: CASE EVENT DATE: 20170307
